FAERS Safety Report 20554710 (Version 1)
Quarter: 2022Q1

REPORT INFORMATION
  Report Type: Spontaneous
  Country: None (occurrence: US)
  Receive Date: 20220304
  Receipt Date: 20220304
  Transmission Date: 20220423
  Serious: Yes (Other)
  Sender: FDA-Public Use
  Company Number: US-B.Braun Medical Inc.-2126468

PATIENT
  Age: 17 Year
  Sex: Female

DRUGS (1)
  1. DEXTROSE\SODIUM CHLORIDE [Suspect]
     Active Substance: DEXTROSE\SODIUM CHLORIDE

REACTIONS (3)
  - Infusion site extravasation [Unknown]
  - Peripheral swelling [Unknown]
  - Blister [Unknown]
